FAERS Safety Report 25068834 (Version 2)
Quarter: 2025Q2

REPORT INFORMATION
  Report Type: Spontaneous
  Country: CA (occurrence: CA)
  Receive Date: 20250312
  Receipt Date: 20250504
  Transmission Date: 20250717
  Serious: Yes (Other)
  Sender: SANOFI AVENTIS
  Company Number: CA-SA-2025SA070356

PATIENT
  Age: 58 Year
  Sex: Female

DRUGS (3)
  1. IRBESARTAN [Suspect]
     Active Substance: IRBESARTAN
     Indication: Product used for unknown indication
     Route: 065
  2. METOPROLOL TARTRATE [Suspect]
     Active Substance: METOPROLOL TARTRATE
     Indication: Product used for unknown indication
  3. ROSUVASTATIN [Suspect]
     Active Substance: ROSUVASTATIN
     Indication: Blood cholesterol
     Dosage: 20 MG, QD
     Route: 048
     Dates: start: 20240514, end: 20240610

REACTIONS (9)
  - Angioedema [Unknown]
  - Cushingoid [Not Recovered/Not Resolved]
  - Dyspnoea [Unknown]
  - Oropharyngeal oedema [Unknown]
  - Swelling [Unknown]
  - Swelling face [Unknown]
  - Thyroglossal cyst [Unknown]
  - Thyroid disorder [Unknown]
  - Drug hypersensitivity [Unknown]
